FAERS Safety Report 5187847-1 (Version None)
Quarter: 2006Q4

REPORT INFORMATION
  Report Type: 
  Country: None (occurrence: None)
  Receive Date: 20061221
  Receipt Date: 20060906
  Transmission Date: 20070319
  Serious: No
  Sender: FDA-Public Use
  Company Number: 2006PV019268

PATIENT
  Age: 55 Year
  Sex: Male
  Weight: 136.4 kg

DRUGS (3)
  1. AVANDARYL [Suspect]
     Dates: end: 20060707
  2. BYETTA [Suspect]
     Dosage: 5MCG TWICE PER DAY
     Route: 058
     Dates: start: 20060707
  3. METFORMIN [Concomitant]

REACTIONS (10)
  - BLOOD GLUCOSE DECREASED [None]
  - BLOOD GLUCOSE INCREASED [None]
  - DECREASED APPETITE [None]
  - FEELING ABNORMAL [None]
  - HEART RATE INCREASED [None]
  - INCREASED APPETITE [None]
  - NAUSEA [None]
  - TENSION [None]
  - VOMITING [None]
  - WEIGHT DECREASED [None]
